FAERS Safety Report 9371830 (Version 2)
Quarter: 2013Q3

REPORT INFORMATION
  Report Type: Spontaneous
  Country: US (occurrence: US)
  Receive Date: 20130627
  Receipt Date: 20130725
  Transmission Date: 20140515
  Serious: Yes (Other)
  Sender: FDA-Public Use
  Company Number: US-PFIZER INC-2013189648

PATIENT
  Age: 59 Year
  Sex: Female
  Weight: 82.5 kg

DRUGS (4)
  1. LYRICA [Suspect]
     Indication: NERVE INJURY
     Dosage: UNK
  2. LYRICA [Suspect]
     Indication: NERVE INJURY
  3. COUMADINE [Concomitant]
     Dosage: UNK
  4. RENVELA [Concomitant]
     Dosage: UNK

REACTIONS (2)
  - Blindness [Unknown]
  - Fall [Unknown]
